FAERS Safety Report 24226664 (Version 1)
Quarter: 2024Q3

REPORT INFORMATION
  Report Type: Report from Study
  Country: ES (occurrence: ES)
  Receive Date: 20240820
  Receipt Date: 20240820
  Transmission Date: 20241017
  Serious: Yes (Hospitalization)
  Sender: JOHNSON AND JOHNSON
  Company Number: None

PATIENT
  Age: 47 Year
  Sex: Male

DRUGS (6)
  1. TOPAMAX [Suspect]
     Active Substance: TOPIRAMATE
     Indication: Product used for unknown indication
     Route: 048
     Dates: start: 20240703, end: 20240703
  2. PREGABALIN [Suspect]
     Active Substance: PREGABALIN
     Indication: Product used for unknown indication
     Route: 048
     Dates: start: 20240703, end: 20240703
  3. TAPENTADOL [Suspect]
     Active Substance: TAPENTADOL
     Indication: Product used for unknown indication
     Route: 048
     Dates: start: 20240703, end: 20240703
  4. CLONAZEPAM [Suspect]
     Active Substance: CLONAZEPAM
     Indication: Product used for unknown indication
     Route: 048
     Dates: start: 20240703, end: 20240703
  5. PAROXETINE [Suspect]
     Active Substance: PAROXETINE
     Indication: Product used for unknown indication
     Route: 048
     Dates: start: 20240703, end: 20240703
  6. OLANZAPINE [Suspect]
     Active Substance: OLANZAPINE
     Indication: Product used for unknown indication
     Route: 048
     Dates: start: 20240703, end: 20240703

REACTIONS (3)
  - Depressed level of consciousness [Recovered/Resolved]
  - Trismus [Recovered/Resolved]
  - Intentional overdose [Recovered/Resolved]

NARRATIVE: CASE EVENT DATE: 20240703
